FAERS Safety Report 5786109-9 (Version None)
Quarter: 2008Q2

REPORT INFORMATION
  Report Type: 
  Country: None (occurrence: None)
  Receive Date: 20080624
  Receipt Date: 20080609
  Transmission Date: 20081010
  Serious: Yes (Other)
  Sender: FDA-Public Use
  Company Number: PHEH2005US07870

PATIENT
  Sex: Female
  Weight: 60.317 kg

DRUGS (25)
  1. ESTRADERM [Suspect]
     Indication: MENOPAUSE
     Dosage: 0.05 MG, UNK
     Route: 062
     Dates: start: 19960722, end: 19970806
  2. ESTRADERM [Suspect]
     Indication: HOT FLUSH
  3. ESTRADERM [Suspect]
     Indication: PROPHYLAXIS
  4. PREMARIN [Suspect]
     Dates: start: 19820101, end: 19960101
  5. PROVERA [Suspect]
     Indication: MENOPAUSE
     Dosage: 2.5 MG, UNK
     Dates: start: 19820101, end: 19960801
  6. PROVERA [Suspect]
     Indication: HOT FLUSH
     Dosage: 2.5 MG, UNK
     Route: 048
     Dates: start: 19960722, end: 19960801
  7. PROVERA [Suspect]
     Indication: PROPHYLAXIS
  8. MPA [Suspect]
     Indication: MENOPAUSE
     Dosage: 2.5 MG, UNK
     Dates: start: 19820101, end: 19960101
  9. MPA [Suspect]
     Dosage: 2.5 MG, UNK
     Dates: start: 19960722, end: 19970705
  10. MPA [Suspect]
     Dosage: 2.5 MG, UNK
     Dates: start: 19970806
  11. PREMPRO [Suspect]
     Indication: MENOPAUSE
     Dosage: 0.625 MG, UNK
     Dates: start: 19970925, end: 20001103
  12. PREMPRO [Suspect]
     Indication: HOT FLUSH
     Dosage: .625 MG/5 MG
     Route: 048
     Dates: start: 19970925, end: 20001103
  13. PREMPRO [Suspect]
     Indication: PROPHYLAXIS
  14. LEVOTHYROXINE SODIUM [Concomitant]
     Indication: HYPOTHYROIDISM
     Dosage: 100 UG, UNK
  15. LASIX [Concomitant]
     Indication: FLUID RETENTION
     Dosage: 40 MG, UNK
  16. POTASSIUM CHLORIDE [Concomitant]
     Indication: MINERAL SUPPLEMENTATION
     Dosage: 10 MEQ, UNK
  17. FOSAMAX [Concomitant]
     Indication: BONE DISORDER
  18. KLONOPIN [Concomitant]
     Indication: DYSTONIA
     Dosage: 0.5 MG, UNK
  19. AXID [Concomitant]
     Dosage: 150 MG, UNK
  20. RELAFEN [Concomitant]
     Dosage: 500MG - 750MG
  21. ROXICET [Concomitant]
     Dosage: 5/325MG
  22. PONDIMIN [Concomitant]
     Dosage: 20 MG, UNK
  23. ESTRING [Concomitant]
     Dosage: 2 MG, UNK
     Dates: start: 20000417
  24. COLCHICINE [Concomitant]
     Dosage: 0.6 MG, UNK
  25. PERCOCET [Concomitant]
     Dosage: 10-650MG

REACTIONS (27)
  - ABDOMINAL PAIN [None]
  - ADENOMYOSIS [None]
  - ADHESIOLYSIS [None]
  - ANXIETY [None]
  - BREAST CANCER [None]
  - BREAST MASS [None]
  - BREAST RECONSTRUCTION [None]
  - CHOLANGIOGRAM ABNORMAL [None]
  - CHOLECYSTECTOMY [None]
  - CHOLECYSTITIS CHRONIC [None]
  - DIVERTICULUM [None]
  - DYSTONIA [None]
  - ECHINOCOCCIASIS [None]
  - GALLBLADDER DISORDER [None]
  - HUMERUS FRACTURE [None]
  - HYSTERECTOMY [None]
  - INFLAMMATION [None]
  - LYMPHADENECTOMY [None]
  - NAUSEA [None]
  - PSYCHIATRIC SYMPTOM [None]
  - PSYCHOGENIC PAIN DISORDER [None]
  - RADICAL MASTECTOMY [None]
  - RADIOTHERAPY [None]
  - SALPINGO-OOPHORECTOMY [None]
  - UTERINE HAEMORRHAGE [None]
  - UTERINE STENOSIS [None]
  - VOMITING [None]
